FAERS Safety Report 7759143-7 (Version None)
Quarter: 2011Q3

REPORT INFORMATION
  Report Type: 
  Country: None (occurrence: None)
  Receive Date: 20110919
  Receipt Date: 20110914
  Transmission Date: 20111222
  Serious: Yes (Other)
  Sender: FDA-Public Use
  Company Number: US-AMGEN-USASP2011047306

PATIENT
  Sex: Male
  Weight: 103.4 kg

DRUGS (11)
  1. CALCIUM CARBONATE [Concomitant]
  2. PRILOSEC [Concomitant]
  3. MULTI-VITAMIN [Concomitant]
  4. NPLATE [Suspect]
     Indication: IDIOPATHIC THROMBOCYTOPENIC PURPURA
     Dates: start: 20100601, end: 20110601
  5. AMARYL [Concomitant]
  6. KEPPRA [Concomitant]
  7. ZYRTEC [Concomitant]
  8. ALTACE [Concomitant]
  9. ZOLOFT [Concomitant]
  10. FOLIC ACID [Concomitant]
  11. HUMALOG [Concomitant]

REACTIONS (1)
  - PLATELET COUNT DECREASED [None]
